FAERS Safety Report 4283458-0 (Version None)
Quarter: 2004Q1

REPORT INFORMATION
  Report Type: 
  Country: None (occurrence: None)
  Receive Date: 20040120
  Receipt Date: 20031113
  Transmission Date: 20041129
  Serious: Yes (Other)
  Sender: FDA-Public Use
  Company Number: US-JNJFOC-20030904395

PATIENT
  Age: 50 Year
  Sex: Female
  Weight: 47.1741 kg

DRUGS (1)
  1. COPPER T [Suspect]
     Indication: CONTRACEPTION
     Dosage: 1 DOSE(S)
     Dates: start: 19981217, end: 20030829

REACTIONS (1)
  - IUCD COMPLICATION [None]
